FAERS Safety Report 7218767-6 (Version None)
Quarter: 2011Q1

REPORT INFORMATION
  Report Type: 
  Country: None (occurrence: None)
  Receive Date: 20110110
  Receipt Date: 20100429
  Transmission Date: 20110831
  Serious: No
  Sender: FDA-Public Use
  Company Number: US-ABBOTT-10P-163-0641485-00

PATIENT
  Age: 18 Year
  Sex: Female

DRUGS (2)
  1. VICODIN [Suspect]
     Indication: PRODUCT USED FOR UNKNOWN INDICATION
     Route: 048
  2. LEVONORGESTREL [Interacting]
     Indication: HIGH RISK SEXUAL BEHAVIOUR
     Dosage: FIRST DOSE 05:30AM, SECOND DOSE 15 HOURS LATER
     Route: 048
     Dates: start: 20100325, end: 20100326

REACTIONS (7)
  - NAUSEA [None]
  - DIZZINESS [None]
  - SKIN HAEMORRHAGE [None]
  - INAPPROPRIATE SCHEDULE OF DRUG ADMINISTRATION [None]
  - DRUG INTERACTION [None]
  - PRURITUS GENERALISED [None]
  - ABDOMINAL PAIN [None]
